FAERS Safety Report 23693209 (Version 2)
Quarter: 2024Q4

REPORT INFORMATION
  Report Type: Spontaneous
  Country: NL (occurrence: NL)
  Receive Date: 20240401
  Receipt Date: 20241014
  Transmission Date: 20250114
  Serious: Yes (Other)
  Sender: NOVARTIS
  Company Number: NL-SANDOZ-SDZ2024NL027473

PATIENT
  Age: 49 Year
  Sex: Male

DRUGS (2)
  1. TERBINAFINE [Suspect]
     Active Substance: TERBINAFINE\TERBINAFINE HYDROCHLORIDE
     Indication: Nail discolouration
     Dosage: UNK
     Route: 048
  2. TERBINAFINE [Suspect]
     Active Substance: TERBINAFINE\TERBINAFINE HYDROCHLORIDE
     Indication: Onychomycosis

REACTIONS (3)
  - Dermatitis exfoliative [Recovered/Resolved]
  - Drug eruption [Recovered/Resolved]
  - Rash macular [Recovered/Resolved]
